FAERS Safety Report 9460110 (Version 1)
Quarter: 2013Q3

REPORT INFORMATION
  Report Type: Spontaneous
  Country: US (occurrence: US)
  Receive Date: 20130815
  Receipt Date: 20130815
  Transmission Date: 20140515
  Serious: Yes (Other)
  Sender: FDA-Public Use
  Company Number: PHHY2013US085242

PATIENT
  Age: 37 Year
  Sex: Female

DRUGS (2)
  1. SUMATRIPTAN [Suspect]
     Indication: MIGRAINE
     Dosage: 4 DF PER DAY
  2. NAPROXEN [Interacting]
     Indication: MIGRAINE
     Dosage: 440 MG

REACTIONS (7)
  - Colitis ischaemic [Recovered/Resolved]
  - Abdominal pain [Recovered/Resolved]
  - Haematochezia [Recovered/Resolved]
  - Abdominal tenderness [Recovered/Resolved]
  - Gastric mucosa erythema [Recovered/Resolved]
  - Gastric haemorrhage [Recovered/Resolved]
  - Drug interaction [Unknown]
